FAERS Safety Report 8382737-5 (Version None)
Quarter: 2012Q2

REPORT INFORMATION
  Report Type: 
  Country: None (occurrence: None)
  Receive Date: 20120524
  Receipt Date: 20120514
  Transmission Date: 20120825
  Serious: Yes (Disabling)
  Sender: FDA-Public Use
  Company Number: CA-CELGENEUS-028-21880-12052328

PATIENT
  Sex: Male

DRUGS (8)
  1. CRESTOR [Concomitant]
     Route: 065
  2. HYDROCHLOROTHIAZIDE [Concomitant]
     Route: 065
  3. ASPIRIN [Concomitant]
     Route: 065
  4. VALTREX [Concomitant]
     Route: 065
  5. REVLIMID [Suspect]
     Indication: MULTIPLE MYELOMA
     Dosage: 10 MILLIGRAM
     Route: 048
     Dates: start: 20120330
  6. TIAZAC [Concomitant]
     Route: 065
  7. NORVASC [Concomitant]
     Route: 065
  8. DECADRON [Concomitant]
     Route: 065

REACTIONS (4)
  - MUSCLE SPASMS [None]
  - VISION BLURRED [None]
  - PARAESTHESIA [None]
  - TREMOR [None]
